FAERS Safety Report 19896743 (Version 4)
Quarter: 2021Q4

REPORT INFORMATION
  Report Type: Spontaneous
  Country: CA (occurrence: CA)
  Receive Date: 20210930
  Receipt Date: 20211223
  Transmission Date: 20220303
  Serious: Yes (Other)
  Sender: FDA-Public Use
  Company Number: CA-CELLTRION INC.-2021CA012033

PATIENT

DRUGS (13)
  1. INFLECTRA [Suspect]
     Active Substance: INFLIXIMAB-DYYB
     Indication: Colitis ulcerative
     Dosage: 5 MG/KG (600MG) AT 0,2, 6 WEEKS, THEN EVERY 8 WEEKS
     Route: 042
     Dates: start: 20210329, end: 20210825
  2. INFLECTRA [Suspect]
     Active Substance: INFLIXIMAB-DYYB
     Dosage: 1 DF
     Route: 042
     Dates: start: 20210329, end: 20211021
  3. INFLECTRA [Suspect]
     Active Substance: INFLIXIMAB-DYYB
     Dosage: 5 MG/KG (600MG) AT 0,2, 6 WEEKS, THEN EVERY 8 WEEKS
     Route: 042
     Dates: start: 20210629
  4. INFLECTRA [Suspect]
     Active Substance: INFLIXIMAB-DYYB
     Dosage: 5 MG/KG (600MG) AT 0,2, 6 WEEKS, THEN EVERY 8 WEEKS
     Route: 042
     Dates: start: 20210825
  5. INFLECTRA [Suspect]
     Active Substance: INFLIXIMAB-DYYB
     Dosage: 5MG/KG ONE-TIME DOSE TO COMPLETE DOSE RECEIVED ON 25AUG2021
     Route: 042
     Dates: start: 20210915, end: 20210915
  6. INFLECTRA [Suspect]
     Active Substance: INFLIXIMAB-DYYB
     Dosage: 10 MG/KG, EVERY 8 WEEKS
     Route: 042
     Dates: start: 20211021
  7. CALCIUM [Concomitant]
     Active Substance: CALCIUM
     Dosage: 1 DF, DOSAGE NOT AVAILABLE
  8. MESALAMINE [Concomitant]
     Active Substance: MESALAMINE
     Dosage: UNK
  9. PREDNISONE [Concomitant]
     Active Substance: PREDNISONE
     Dosage: 1 DF, DOSAGE NOT AVAILABLE
     Route: 065
  10. SULFASALAZINE [Concomitant]
     Active Substance: SULFASALAZINE
     Dosage: 1 DF,DOSAGE NOT AVAILABLE
     Dates: start: 2018
  11. SEPTRA [Concomitant]
     Active Substance: SULFAMETHOXAZOLE\TRIMETHOPRIM
     Dosage: UNK
  12. VITAMIN D NOS [Concomitant]
     Active Substance: VITAMIN D NOS
     Dosage: 1 DF,DOSAGE NOT AVAILABLE
     Route: 065
  13. XELJANZ [Concomitant]
     Active Substance: TOFACITINIB CITRATE
     Indication: Colitis ulcerative
     Dosage: 10 MG, 2X/DAY
     Route: 048
     Dates: start: 20211210

REACTIONS (4)
  - Haematochezia [Recovering/Resolving]
  - Condition aggravated [Not Recovered/Not Resolved]
  - Malaise [Unknown]
  - Off label use [Unknown]

NARRATIVE: CASE EVENT DATE: 20210101
